FAERS Safety Report 9632960 (Version 2)
Quarter: 2013Q4

REPORT INFORMATION
  Report Type: Report from Study
  Country: US (occurrence: US)
  Receive Date: 20131018
  Receipt Date: 20131104
  Transmission Date: 20140711
  Serious: Yes (Death, Hospitalization)
  Sender: FDA-Public Use
  Company Number: US-009507513-1310USA008306

PATIENT
  Age: 70 Year
  Sex: Male
  Weight: 70.3 kg

DRUGS (2)
  1. VORINOSTAT [Suspect]
     Indication: MYELODYSPLASTIC SYNDROME
     Dosage: 300 MG, BID ON DAYS 3-9
     Route: 048
     Dates: start: 20130912, end: 20130918
  2. AZACITIDINE [Suspect]
     Indication: MYELODYSPLASTIC SYNDROME
     Dosage: 75 MG/M2, QD ON DAYS 1-7 OR 75 MG/M2 ON DAYS 1-5 AND DAYS 8-9
     Route: 058
     Dates: start: 20130910, end: 20130918

REACTIONS (7)
  - Lung infection [Fatal]
  - Dyspnoea [Recovered/Resolved with Sequelae]
  - Dizziness [Recovered/Resolved with Sequelae]
  - Non-cardiac chest pain [Recovered/Resolved with Sequelae]
  - Pyrexia [Unknown]
  - Dyspnoea [Unknown]
  - Muscular weakness [Unknown]
